FAERS Safety Report 12507938 (Version 1)
Quarter: 2016Q2

REPORT INFORMATION
  Report Type: Report from Study
  Country: BR (occurrence: BR)
  Receive Date: 20160629
  Receipt Date: 20160629
  Transmission Date: 20160815
  Serious: Yes (Hospitalization)
  Sender: FDA-Public Use
  Company Number: PHHY2016BR088696

PATIENT
  Sex: Female
  Weight: 28 kg

DRUGS (1)
  1. EXJADE [Suspect]
     Active Substance: DEFERASIROX
     Indication: SICKLE CELL ANAEMIA
     Dosage: 20 MG/KG (500 MG), QD
     Route: 048
     Dates: start: 201604

REACTIONS (3)
  - Malaise [Unknown]
  - Dyspnoea [Unknown]
  - Blood iron increased [Unknown]
